FAERS Safety Report 9302796 (Version 1)
Quarter: 2013Q2

REPORT INFORMATION
  Report Type: Spontaneous
  Country: GB (occurrence: None)
  Receive Date: 20130516
  Receipt Date: 20130516
  Transmission Date: 20140414
  Serious: Yes (Other)
  Sender: FDA-Public Use
  Company Number: 2012000311

PATIENT
  Age: 55 Year
  Sex: Male

DRUGS (4)
  1. ACEON [Suspect]
     Indication: HYPERTENSION
  2. DILTIAZEM [Suspect]
     Indication: HYPERTENSION
  3. INDAPAMIDE [Suspect]
     Indication: HYPERTENSION
  4. ATENOLOL [Suspect]
     Indication: HYPERTENSION

REACTIONS (1)
  - Drug resistance [None]
